FAERS Safety Report 8548284-2 (Version None)
Quarter: 2012Q3

REPORT INFORMATION
  Report Type: 
  Country: None (occurrence: None)
  Receive Date: 20120717
  Receipt Date: 20120704
  Transmission Date: 20120928
  Serious: Yes (Hospitalization)
  Sender: FDA-Public Use
  Company Number: AUR-APL-2012-02952

PATIENT
  Age: 56 Year
  Sex: Male

DRUGS (2)
  1. PIPERACILLIN/TAZOBACTAM [Suspect]
     Indication: OSTEOMYELITIS
  2. MEROPENEM [Suspect]
     Indication: NOSOCOMIAL INFECTION

REACTIONS (6)
  - RENAL FAILURE ACUTE [None]
  - CROSS SENSITIVITY REACTION [None]
  - TUBULOINTERSTITIAL NEPHRITIS [None]
  - PULMONARY RENAL SYNDROME [None]
  - RASH [None]
  - NOSOCOMIAL INFECTION [None]
